FAERS Safety Report 5084593-X (Version None)
Quarter: 2006Q3

REPORT INFORMATION
  Report Type: 
  Country: None (occurrence: None)
  Receive Date: 20060818
  Receipt Date: 20060818
  Transmission Date: 20061208
  Serious: Yes (Other)
  Sender: FDA-Public Use
  Company Number: None

PATIENT
  Age: 51 Year
  Sex: Male
  Weight: 98.8842 kg

DRUGS (1)
  1. FLEXERIL [Suspect]
     Indication: EATON-LAMBERT SYNDROME
     Dosage: ONE  PO   8 HOURS
     Route: 048

REACTIONS (1)
  - ABDOMINAL DISCOMFORT [None]
